FAERS Safety Report 16581443 (Version 2)
Quarter: 2019Q3

REPORT INFORMATION
  Report Type: Spontaneous
  Country: US (occurrence: US)
  Receive Date: 20190716
  Receipt Date: 20190722
  Transmission Date: 20191004
  Serious: No
  Sender: FDA-Public Use
  Company Number: US-GILEAD-2019-0418589

PATIENT
  Age: 42 Year
  Sex: Male

DRUGS (2)
  1. VYVANSE [Concomitant]
     Active Substance: LISDEXAMFETAMINE DIMESYLATE
     Dosage: 30 MG
     Route: 048
     Dates: start: 20190425
  2. TRUVADA [Suspect]
     Active Substance: EMTRICITABINE\TENOFOVIR DISOPROXIL FUMARATE
     Indication: PRODUCT USED FOR UNKNOWN INDICATION
     Dosage: 200/300 MG
     Route: 065

REACTIONS (1)
  - Product storage error [Recovered/Resolved]

NARRATIVE: CASE EVENT DATE: 20190710
